FAERS Safety Report 8547145-2 (Version None)
Quarter: 2012Q3

REPORT INFORMATION
  Report Type: 
  Country: None (occurrence: None)
  Receive Date: 20120727
  Receipt Date: 20120302
  Transmission Date: 20120928
  Serious: No
  Sender: FDA-Public Use
  Company Number: US-ASTRAZENECA-2012SE11831

PATIENT
  Age: 42 Year
  Sex: Male

DRUGS (7)
  1. SOMA [Concomitant]
     Indication: MUSCLE RELAXANT THERAPY
  2. KLONOPIN [Concomitant]
     Indication: ANXIETY
  3. ALEVE [Concomitant]
     Dosage: TWO TIMES A DAY
  4. ULTRAM [Suspect]
     Route: 065
  5. SEROQUEL XR [Suspect]
     Indication: SLEEP DISORDER
     Route: 048
     Dates: start: 20120124, end: 20120224
  6. SEROQUEL XR [Suspect]
     Route: 048
  7. ZOLOFT [Concomitant]
     Indication: NERVOUS SYSTEM DISORDER

REACTIONS (19)
  - CHILLS [None]
  - SKIN EXFOLIATION [None]
  - WITHDRAWAL SYNDROME [None]
  - ERYTHEMA [None]
  - HOT FLUSH [None]
  - PANIC DISORDER [None]
  - INSOMNIA [None]
  - POOR QUALITY SLEEP [None]
  - DIARRHOEA [None]
  - DYSPNOEA [None]
  - ABNORMAL DREAMS [None]
  - DRUG DOSE OMISSION [None]
  - INTERVERTEBRAL DISC DEGENERATION [None]
  - IMPAIRED WORK ABILITY [None]
  - TREMOR [None]
  - OFF LABEL USE [None]
  - HYPOPNOEA [None]
  - NAUSEA [None]
  - VISION BLURRED [None]
